FAERS Safety Report 6088661-5 (Version None)
Quarter: 2009Q1

REPORT INFORMATION
  Report Type: 
  Country: None (occurrence: None)
  Receive Date: 20090224
  Receipt Date: 20090213
  Transmission Date: 20090719
  Serious: Yes (Hospitalization)
  Sender: FDA-Public Use
  Company Number: JP-BRISTOL-MYERS SQUIBB COMPANY-14513840

PATIENT
  Age: 33 Year
  Sex: Male

DRUGS (9)
  1. ABILIFY [Suspect]
     Indication: SCHIZOPHRENIA
     Dosage: REGIMEN2-12MG/D,ORAL; REGIMEN3-6MG/D, ORAL.
     Route: 048
  2. OLANZAPINE [Concomitant]
  3. ZOTEPINE [Concomitant]
  4. CARBAMAZEPINE [Concomitant]
  5. LITHIUM CARBONATE [Concomitant]
     Dosage: TAB
  6. BIPERIDEN HYDROCHLORIDE TAB [Concomitant]
     Dosage: TAB
  7. NITRAZEPAM [Concomitant]
     Dosage: TAB
  8. BLONANSERIN [Concomitant]
  9. ZOPICLONE [Concomitant]
     Dosage: TAB

REACTIONS (2)
  - HALLUCINATION, AUDITORY [None]
  - SELF INJURIOUS BEHAVIOUR [None]
